FAERS Safety Report 5114668-8 (Version None)
Quarter: 2006Q3

REPORT INFORMATION
  Report Type: 
  Country: None (occurrence: None)
  Receive Date: 20060926
  Receipt Date: 20060914
  Transmission Date: 20061208
  Serious: Yes (Death)
  Sender: FDA-Public Use
  Company Number: US-JNJFOC-20040807779

PATIENT
  Sex: Female

DRUGS (2)
  1. REMICADE [Suspect]
     Indication: RHEUMATOID ARTHRITIS
     Route: 042
  2. PREDNISONE TAB [Concomitant]
     Dosage: DAILY

REACTIONS (5)
  - DEATH [None]
  - FATIGUE [None]
  - MALAISE [None]
  - PATHOLOGICAL FRACTURE [None]
  - RHEUMATOID ARTHRITIS [None]
